FAERS Safety Report 9781136 (Version 1)
Quarter: 2013Q4

REPORT INFORMATION
  Report Type: Spontaneous
  Country: None (occurrence: None)
  Receive Date: 20131220
  Receipt Date: 20131220
  Transmission Date: 20140711
  Serious: Yes (Other)
  Sender: FDA-Public Use
  Company Number: 2013P1022080

PATIENT
  Age: 81 Year
  Sex: Male

DRUGS (3)
  1. DIGOXIN [Suspect]
  2. AMIODARONE [Suspect]
  3. WARFARIN [Concomitant]

REACTIONS (3)
  - Visual impairment [None]
  - Visual field defect [None]
  - Optic disc disorder [None]
